FAERS Safety Report 7575113-6 (Version None)
Quarter: 2011Q2

REPORT INFORMATION
  Report Type: 
  Country: None (occurrence: None)
  Receive Date: 20110627
  Receipt Date: 20110622
  Transmission Date: 20111010
  Serious: Yes (Hospitalization, Other)
  Sender: FDA-Public Use
  Company Number: US-PFIZER INC-2010141201

PATIENT
  Sex: Female

DRUGS (3)
  1. DITROPAN XL [Concomitant]
     Indication: HYPERTONIC BLADDER
     Dosage: 15 MG, UNK
     Dates: start: 19970101
  2. CHANTIX [Suspect]
     Indication: SMOKING CESSATION THERAPY
     Dosage: 1 MG, UNK
     Dates: start: 20090331, end: 20090424
  3. IBUPROFEN [Concomitant]
     Indication: PAIN
     Dosage: 800, UNK
     Dates: start: 19970101

REACTIONS (10)
  - AGGRESSION [None]
  - ABNORMAL BEHAVIOUR [None]
  - INTENTIONAL OVERDOSE [None]
  - ANXIETY [None]
  - CONVULSION [None]
  - DEPRESSION [None]
  - EMOTIONAL DISTRESS [None]
  - MENTAL DISORDER [None]
  - SUICIDE ATTEMPT [None]
  - LOSS OF CONSCIOUSNESS [None]
